FAERS Safety Report 18664157 (Version 1)
Quarter: 2020Q4

REPORT INFORMATION
  Report Type: Spontaneous
  Country: US (occurrence: US)
  Receive Date: 20201225
  Receipt Date: 20201225
  Transmission Date: 20210114
  Serious: No
  Sender: FDA-Public Use
  Company Number: NVSC2020US342796

PATIENT
  Age: 80 Year
  Sex: Male

DRUGS (1)
  1. VOLTAREN [Suspect]
     Active Substance: DICLOFENAC SODIUM
     Indication: PRODUCT ADMINISTERED AT INAPPROPRIATE SITE
     Dosage: UNK
     Route: 065
     Dates: start: 20201214

REACTIONS (2)
  - Product administered at inappropriate site [Unknown]
  - Off label use [Unknown]
